FAERS Safety Report 7458332-9 (Version None)
Quarter: 2011Q2

REPORT INFORMATION
  Report Type: 
  Country: None (occurrence: None)
  Receive Date: 20110504
  Receipt Date: 20110428
  Transmission Date: 20111010
  Serious: Yes (Hospitalization)
  Sender: FDA-Public Use
  Company Number: FR-BRISTOL-MYERS SQUIBB COMPANY-15709462

PATIENT
  Age: 87 Year
  Sex: Female

DRUGS (2)
  1. RIVOTRIL [Concomitant]
     Dosage: 2.5 MG/ML, DROPS FOR ORAL SOL'N,1 DROP = 0.1 MG,0.7 MG/DAY.
     Route: 048
  2. COUMADIN [Suspect]
     Indication: THROMBOSIS PROPHYLAXIS
     Dosage: INTERRUPTED ON24JAN11,RESTARTED ON 25MAR11
     Route: 048
     Dates: end: 20110124

REACTIONS (2)
  - HAEMATOMA [None]
  - ATRIAL FIBRILLATION [None]
